FAERS Safety Report 8238450-8 (Version None)
Quarter: 2012Q1

REPORT INFORMATION
  Report Type: 
  Country: None (occurrence: None)
  Receive Date: 20120327
  Receipt Date: 20120314
  Transmission Date: 20120608
  Serious: Yes (Hospitalization)
  Sender: FDA-Public Use
  Company Number: JP-ROCHE-1049503

PATIENT
  Age: 67 Year
  Sex: Female

DRUGS (5)
  1. BACTRIM [Suspect]
     Indication: INFECTIVE TENOSYNOVITIS
     Dosage: DOSAGE IS UNCERTAIN.
     Route: 048
  2. MEROPENEM [Suspect]
     Indication: INFECTIVE TENOSYNOVITIS
     Dosage: DOSAGE IS UNCERTAIN.
     Route: 041
  3. ACTEMRA [Suspect]
     Indication: RHEUMATOID ARTHRITIS
     Dates: start: 20100401
  4. MINOCYCLINE HYDROCHLORIDE [Suspect]
     Indication: INFECTIVE TENOSYNOVITIS
     Dosage: DOSAGE IS UNCERTAIN.
     Route: 041
  5. UNASYN [Suspect]
     Indication: INFECTIVE TENOSYNOVITIS
     Dosage: DOSAGE IS UNCERTAIN.
     Route: 048

REACTIONS (2)
  - TOXIC SKIN ERUPTION [None]
  - INFECTIVE TENOSYNOVITIS [None]
